FAERS Safety Report 23748864 (Version 1)
Quarter: 2024Q2

REPORT INFORMATION
  Report Type: Spontaneous
  Country: CA (occurrence: CA)
  Receive Date: 20240416
  Receipt Date: 20240416
  Transmission Date: 20240716
  Serious: Yes (Other)
  Sender: FDA-Public Use
  Company Number: CA-TEVA-VS-3181669

PATIENT
  Age: 75 Year
  Sex: Female
  Weight: 92 kg

DRUGS (27)
  1. SPIRONOLACTONE [Suspect]
     Active Substance: SPIRONOLACTONE
     Indication: Cardiac failure
     Route: 048
  2. CALCIUM [Concomitant]
     Active Substance: CALCIUM
     Dosage: DOSE FORM: NOT SPECIFIED
     Route: 065
  3. DEXILANT [Concomitant]
     Active Substance: DEXLANSOPRAZOLE
     Dosage: CAPSULE, DELAYED RELEASE
     Route: 065
  4. DILTIAZEM [Concomitant]
     Active Substance: DILTIAZEM
     Dosage: DILTIAZEM ER
     Route: 065
  5. DOCUSATE SODIUM [Concomitant]
     Active Substance: DOCUSATE SODIUM
     Dosage: DOSE FORM: NOT SPECIFIED
     Route: 065
  6. FLUOXETINE [Concomitant]
     Active Substance: FLUOXETINE HYDROCHLORIDE
     Dosage: DOSE FORM: NOT SPECIFIED
     Route: 065
  7. FLUTICASONE [Concomitant]
     Active Substance: FLUTICASONE
     Dosage: DOSE FORM: NOT SPECIFIED
     Route: 065
  8. FLUTICASONE?PROPIONATE/SALMETER?OL [Concomitant]
     Dosage: ROA: INHALATION
  9. GLICLAZIDE [Concomitant]
     Active Substance: GLICLAZIDE
     Dosage: TABLET (EXTENDED RELEASE)
     Route: 065
  10. HYDRALAZINE [Concomitant]
     Active Substance: HYDRALAZINE HYDROCHLORIDE
     Dosage: DOSE FORM: NOT SPECIFIED
     Route: 065
  11. JANUMET [Concomitant]
     Active Substance: METFORMIN HYDROCHLORIDE\SITAGLIPTIN PHOSPHATE
     Dosage: DOSE FORM: NOT SPECIFIED
     Route: 065
  12. LORAZEPAM [Concomitant]
     Active Substance: LORAZEPAM
     Dosage: DOSE FORM: NOT SPECIFIED
     Route: 065
  13. MAXIDEX [Concomitant]
     Active Substance: DEXAMETHASONE
     Dosage: DOSE FORM: NOT SPECIFIED
     Route: 065
  14. MOXIFLOXACIN [Concomitant]
     Active Substance: MOXIFLOXACIN
     Dosage: DOSE FORM: NOT SPECIFIED
     Route: 065
  15. NAPROXEN [Concomitant]
     Active Substance: NAPROXEN
     Dosage: DOSE FORM: NOT SPECIFIED
     Route: 065
  16. NEVANAC [Concomitant]
     Active Substance: NEPAFENAC
     Dosage: DOSE FORM: SUSPENSION OPHTHALMIC
     Route: 065
  17. ALBUTEROL [Concomitant]
     Active Substance: ALBUTEROL
     Dosage: DOSE FORM: NOT SPECIFIED.
     Route: 065
  18. SPIRIVA [Concomitant]
     Active Substance: TIOTROPIUM BROMIDE MONOHYDRATE
     Dosage: DOSE FORM: NOT SPECIFIED
     Route: 065
  19. VITAMIN B12 [Concomitant]
     Active Substance: CYANOCOBALAMIN
     Dosage: DOSE FORM: NOT SPECIFIED
     Route: 065
  20. INDAPAMIDE\PERINDOPRIL ERBUMINE [Suspect]
     Active Substance: INDAPAMIDE\PERINDOPRIL ERBUMINE
     Indication: Cardiac failure
     Route: 048
  21. ACETAMINOPHEN [Concomitant]
     Active Substance: ACETAMINOPHEN
     Dosage: DOSE FORM: NOT SPECIFIED
     Route: 065
  22. AMITRIPTYLINE [Concomitant]
     Active Substance: AMITRIPTYLINE
     Route: 065
  23. ASPIRIN [Concomitant]
     Active Substance: ASPIRIN
     Dosage: DOSE FORM: NOT SPECIFIED
     Route: 065
  24. ATORVASTATIN CALCIUM [Concomitant]
     Active Substance: ATORVASTATIN CALCIUM
     Dosage: DOSE FORM: NOT SPECIFIED
     Route: 065
  25. BETAMETHASONE DIPROPIONATE\SALICYLIC ACID [Concomitant]
     Active Substance: BETAMETHASONE DIPROPIONATE\SALICYLIC ACID
     Route: 065
  26. PREDNISOLONE [Concomitant]
     Active Substance: PREDNISOLONE
     Dosage: DOSE FORM: NOT SPECIFIED
     Route: 065
  27. QUETIAPINE [Concomitant]
     Active Substance: QUETIAPINE
     Route: 065

REACTIONS (1)
  - Hyperkalaemia [Recovered/Resolved]
